FAERS Safety Report 5176350-0 (Version None)
Quarter: 2006Q4

REPORT INFORMATION
  Report Type: 
  Country: None (occurrence: None)
  Receive Date: 20061207
  Receipt Date: 20061130
  Transmission Date: 20070319
  Serious: Yes (Other)
  Sender: FDA-Public Use
  Company Number: GBWYE721801DEC06

PATIENT
  Age: 50 Year
  Sex: Male

DRUGS (6)
  1. RAPAMUNE [Suspect]
     Indication: PANCREAS TRANSPLANT
     Dosage: 3 MG, FREQUENCY UNSPECIFIED, ORAL
     Route: 048
     Dates: start: 20060914, end: 20061030
  2. RAPAMUNE [Suspect]
     Indication: RENAL TRANSPLANT
     Dosage: 3 MG, FREQUENCY UNSPECIFIED, ORAL
     Route: 048
     Dates: start: 20060914, end: 20061030
  3. RECORMON (ERYTHROPOIETIN HUMAN, , 0) [Suspect]
     Indication: ANAEMIA
     Dosage: 2000 IU 2X PER 1 WK, SC
     Route: 058
     Dates: start: 20060925
  4. ALFACALCIDOL (ALFACALCIDOL) [Concomitant]
  5. ATENOLOL [Concomitant]
  6. SODIUM BICARBONATE IN PLASTIC CONTAINER [Concomitant]

REACTIONS (3)
  - NEPHRITIS INTERSTITIAL [None]
  - RENAL IMPAIRMENT [None]
  - RENAL TUBULAR NECROSIS [None]
